FAERS Safety Report 8174604-7 (Version None)
Quarter: 2012Q1

REPORT INFORMATION
  Report Type: 
  Country: None (occurrence: None)
  Receive Date: 20120229
  Receipt Date: 20120227
  Transmission Date: 20120608
  Serious: No
  Sender: FDA-Public Use
  Company Number: US-PFIZER INC-2012051666

PATIENT
  Sex: Female

DRUGS (2)
  1. COLESTIPOL HYDROCHLORIDE [Suspect]
     Dosage: UNK
  2. FENOFIBRATE [Suspect]
     Indication: BLOOD CHOLESTEROL INCREASED
     Dosage: UNK
     Dates: start: 20120101, end: 20120101

REACTIONS (6)
  - ABDOMINAL PAIN UPPER [None]
  - FEELING ABNORMAL [None]
  - DRUG INTOLERANCE [None]
  - DIZZINESS [None]
  - PHARYNGEAL OEDEMA [None]
  - NAUSEA [None]
